FAERS Safety Report 13679191 (Version 1)
Quarter: 2017Q2

REPORT INFORMATION
  Report Type: Spontaneous
  Country: US (occurrence: US)
  Receive Date: 20170622
  Receipt Date: 20170622
  Transmission Date: 20170830
  Serious: No
  Sender: FDA-Public Use
  Company Number: US-DLSS-2017AYT000037

PATIENT

DRUGS (1)
  1. NATESTO [Suspect]
     Active Substance: TESTOSTERONE
     Indication: BLOOD TESTOSTERONE DECREASED
     Dosage: UNK, TID
     Route: 045
     Dates: start: 201702

REACTIONS (2)
  - Blood testosterone decreased [None]
  - Drug ineffective [Unknown]

NARRATIVE: CASE EVENT DATE: 2017
